FAERS Safety Report 21658467 (Version 1)
Quarter: 2022Q4

REPORT INFORMATION
  Report Type: Report from Study
  Country: US (occurrence: US)
  Receive Date: 20221129
  Receipt Date: 20221129
  Transmission Date: 20230113
  Serious: Yes (Other)
  Sender: FDA-Public Use
  Company Number: US-KADMON-US-KAD-22-01034

PATIENT
  Age: 79 Year
  Sex: Female

DRUGS (1)
  1. BELUMOSUDIL MESYLATE [Suspect]
     Active Substance: BELUMOSUDIL MESYLATE
     Indication: Product used for unknown indication
     Dosage: 200 MG, QD

REACTIONS (8)
  - Myelodysplastic syndrome [Unknown]
  - Renal cyst [Unknown]
  - Dry eye [Unknown]
  - Skin atrophy [Unknown]
  - Skin exfoliation [Unknown]
  - Platelet count decreased [Unknown]
  - Infection [Unknown]
  - Wound [Unknown]

NARRATIVE: CASE EVENT DATE: 20221024
